FAERS Safety Report 13544665 (Version 1)
Quarter: 2017Q2

REPORT INFORMATION
  Report Type: Spontaneous
  Country: US (occurrence: US)
  Receive Date: 20170515
  Receipt Date: 20170515
  Transmission Date: 20170830
  Serious: No
  Sender: FDA-Public Use
  Company Number: US-VIIV HEALTHCARE LIMITED-US2017070300

PATIENT
  Sex: Female

DRUGS (1)
  1. TRIUMEQ [Suspect]
     Active Substance: ABACAVIR SULFATE\DOLUTEGRAVIR SODIUM\LAMIVUDINE
     Indication: PRODUCT USED FOR UNKNOWN INDICATION
     Dosage: 1 DF, 1D
     Route: 048

REACTIONS (7)
  - Nausea [Unknown]
  - Fatigue [Unknown]
  - Headache [Unknown]
  - Decreased appetite [Unknown]
  - Myalgia [Unknown]
  - Hypersensitivity [Unknown]
  - Pyrexia [Unknown]
